FAERS Safety Report 8479444-7 (Version None)
Quarter: 2012Q2

REPORT INFORMATION
  Report Type: 
  Country: None (occurrence: None)
  Receive Date: 20120629
  Receipt Date: 20120622
  Transmission Date: 20120825
  Serious: Yes (Other)
  Sender: FDA-Public Use
  Company Number: IT-B.I. PHARMACEUTICALS,INC./RIDGEFIELD-2012-EU-03282GD

PATIENT
  Age: 49 Year
  Sex: Male

DRUGS (4)
  1. L-DOPA [Suspect]
     Dosage: 400 MG
  2. PRAMIPEXOLE DIHYCHLORIDE [Suspect]
     Indication: PARKINSON'S DISEASE
     Dosage: 4.5 MG
  3. L-DOPA [Suspect]
     Indication: PARKINSON'S DISEASE
     Dosage: 250 MG
  4. BIPERIDENE [Concomitant]
     Indication: PARKINSON'S DISEASE
     Dosage: 4 MG

REACTIONS (3)
  - MARITAL PROBLEM [None]
  - ECONOMIC PROBLEM [None]
  - PATHOLOGICAL GAMBLING [None]
